FAERS Safety Report 4349312-0 (Version None)
Quarter: 2004Q2

REPORT INFORMATION
  Report Type: 
  Country: None (occurrence: None)
  Receive Date: 20040428
  Receipt Date: 20021017
  Transmission Date: 20050107
  Serious: Yes (Hospitalization)
  Sender: FDA-Public Use
  Company Number: US-BRISTOL-MYERS SQUIBB COMPANY-12079240

PATIENT
  Age: 71 Year
  Sex: Male

DRUGS (4)
  1. BMS224818 [Concomitant]
     Dosage: REALLOCATION DATE:  30-DEC-2002
     Route: 042
     Dates: start: 20021004
  2. SIMULECT [Suspect]
     Route: 042
     Dates: start: 20021004, end: 20021009
  3. CELLCEPT [Suspect]
     Dates: start: 20021004
  4. MEDROL [Suspect]
     Dates: start: 20021006

REACTIONS (1)
  - KIDNEY TRANSPLANT REJECTION [None]
